FAERS Safety Report 21143927 (Version 1)
Quarter: 2022Q3

REPORT INFORMATION
  Report Type: Spontaneous
  Country: US (occurrence: None)
  Receive Date: 20220728
  Receipt Date: 20220728
  Transmission Date: 20221026
  Serious: Yes (Hospitalization)
  Sender: FDA-Public Use
  Company Number: None

PATIENT
  Age: 42 Year
  Sex: Male
  Weight: 83.01 kg

DRUGS (4)
  1. WAL-PHED PE DAYTIME / NIGHTTIME [Suspect]
     Active Substance: DIPHENHYDRAMINE HYDROCHLORIDE\PHENYLEPHRINE HYDROCHLORIDE
     Indication: Rhinorrhoea
     Route: 048
     Dates: start: 20220705, end: 20220726
  2. SERTRALINE [Concomitant]
     Active Substance: SERTRALINE HYDROCHLORIDE
  3. VITAMINS [Concomitant]
     Active Substance: VITAMINS
  4. FISH OIL [Concomitant]
     Active Substance: FISH OIL

REACTIONS (9)
  - Hyperhidrosis [None]
  - Nausea [None]
  - Vomiting [None]
  - Dizziness [None]
  - Haematemesis [None]
  - Vomiting [None]
  - Diarrhoea [None]
  - Drug hypersensitivity [None]
  - Suspected product quality issue [None]

NARRATIVE: CASE EVENT DATE: 20220705
